FAERS Safety Report 6926411-8 (Version None)
Quarter: 2010Q3

REPORT INFORMATION
  Report Type: 
  Country: None (occurrence: None)
  Receive Date: 20100816
  Receipt Date: 20100816
  Transmission Date: 20110219
  Serious: Yes (Hospitalization)
  Sender: FDA-Public Use
  Company Number: None

PATIENT
  Age: 71 Year
  Sex: Male
  Weight: 80 kg

DRUGS (1)
  1. LEFLUNOMIDE [Suspect]
     Indication: DIARRHOEA
     Dosage: 20 MG EVERY DAY PO
     Route: 048
     Dates: start: 20090302, end: 20100311

REACTIONS (1)
  - DIARRHOEA [None]
